FAERS Safety Report 9256998 (Version 2)
Quarter: 2013Q3

REPORT INFORMATION
  Report Type: Spontaneous
  Country: US (occurrence: US)
  Receive Date: 20130426
  Receipt Date: 20130702
  Transmission Date: 20140515
  Serious: Yes (Other)
  Sender: FDA-Public Use
  Company Number: US-ELI_LILLY_AND_COMPANY-US201304006158

PATIENT
  Age: 68 Year
  Sex: Female
  Weight: 51.7 kg

DRUGS (4)
  1. FORTEO [Suspect]
     Indication: OSTEOPOROSIS
     Dosage: 20 UG, QD
     Dates: start: 20120919
  2. PROZAC [Concomitant]
  3. PROTEIN [Concomitant]
  4. ARICEPT [Concomitant]

REACTIONS (1)
  - Localised infection [Unknown]
